FAERS Safety Report 4710010-2 (Version None)
Quarter: 2005Q3

REPORT INFORMATION
  Report Type: 
  Country: None (occurrence: None)
  Receive Date: 20050708
  Receipt Date: 20050628
  Transmission Date: 20060218
  Serious: Yes (Hospitalization)
  Sender: FDA-Public Use
  Company Number: FR-ABBOTT-05P-056-0304548-00

PATIENT
  Age: 57 Year
  Sex: Male

DRUGS (4)
  1. LIPANTHYL [Suspect]
     Indication: DRUG USE FOR UNKNOWN INDICATION
     Route: 048
     Dates: start: 19920615, end: 20050101
  2. LIPANTHYL [Suspect]
     Route: 048
     Dates: start: 20050301
  3. ALLOPURINOL [Concomitant]
     Indication: DRUG USE FOR UNKNOWN INDICATION
     Dates: start: 19920615, end: 20050101
  4. ALLOPURINOL [Concomitant]
     Dates: start: 20050301

REACTIONS (2)
  - DEMYELINATING POLYNEUROPATHY [None]
  - NEUROPATHY PERIPHERAL [None]
